FAERS Safety Report 16740961 (Version 5)
Quarter: 2019Q4

REPORT INFORMATION
  Report Type: Spontaneous
  Country: DE (occurrence: DE)
  Receive Date: 20190826
  Receipt Date: 20191202
  Transmission Date: 20200122
  Serious: Yes (Other)
  Sender: FDA-Public Use
  Company Number: DE-ROCHE-2386588

PATIENT
  Sex: Female

DRUGS (13)
  1. SPASMOLYT [Suspect]
     Active Substance: TROSPIUM CHLORIDE
     Indication: PRODUCT USED FOR UNKNOWN INDICATION
     Dosage: 30 MG (0 -0 -1)
     Route: 065
  2. ROACTEMRA [Suspect]
     Active Substance: TOCILIZUMAB
     Route: 058
     Dates: start: 20190118
  3. ROACTEMRA [Suspect]
     Active Substance: TOCILIZUMAB
     Indication: RHEUMATOID ARTHRITIS
     Dosage: 162 MG, QW
     Route: 058
     Dates: start: 20150427
  4. VOLIBRIS [Suspect]
     Active Substance: AMBRISENTAN
     Indication: GOUT
     Route: 048
  5. AMBRISENTAN [Suspect]
     Active Substance: AMBRISENTAN
     Dosage: 30 MILLIGRAM, QD
     Route: 065
  6. SILDENAFIL CITRATE. [Suspect]
     Active Substance: SILDENAFIL CITRATE
     Indication: PULMONARY HYPERTENSION
     Dosage: 60 MILLIGRAM, DAILY DOSE
     Route: 065
  7. LYRICA [Suspect]
     Active Substance: PREGABALIN
     Indication: PRODUCT USED FOR UNKNOWN INDICATION
     Dosage: 100 MG, TID (1 - 1 - 1)
     Route: 065
  8. SPASMOLYT [Suspect]
     Active Substance: TROSPIUM CHLORIDE
     Dosage: 15 (UNIT NOT SPECIFIED), QD ((1 - 0 - 0)
     Route: 065
  9. AMBRISENTAN [Suspect]
     Active Substance: AMBRISENTAN
     Indication: PRODUCT USED FOR UNKNOWN INDICATION
     Route: 065
  10. QUENSYL [Suspect]
     Active Substance: HYDROXYCHLOROQUINE
     Indication: PRODUCT USED FOR UNKNOWN INDICATION
     Dosage: 1 DF, BID (1 - 0 - 1)
     Route: 065
  11. RAMIPRIL. [Suspect]
     Active Substance: RAMIPRIL
     Indication: PRODUCT USED FOR UNKNOWN INDICATION
     Dosage: 1 DF, BID (1 - 0 - 1)
     Route: 048
  12. OMEPRAZOLE. [Suspect]
     Active Substance: OMEPRAZOLE
     Indication: PRODUCT USED FOR UNKNOWN INDICATION
     Dosage: 1 DF, BID (1 - 0 - 1)
     Route: 048
  13. ELIQUIS [Suspect]
     Active Substance: APIXABAN
     Indication: CEREBROVASCULAR ACCIDENT PROPHYLAXIS
     Dosage: 2.5 MG BID
     Route: 065

REACTIONS (11)
  - Ligament sprain [Recovering/Resolving]
  - Peripheral coldness [Recovered/Resolved]
  - Paraesthesia [Recovered/Resolved]
  - Arthralgia [Not Recovered/Not Resolved]
  - Nasopharyngitis [Recovered/Resolved]
  - Oedema peripheral [Recovered/Resolved]
  - Pain in extremity [Recovered/Resolved]
  - Arthropathy [Unknown]
  - Visual impairment [Not Recovered/Not Resolved]
  - Therapeutic product effect incomplete [Unknown]
  - Pulmonary hypertension [Not Recovered/Not Resolved]

NARRATIVE: CASE EVENT DATE: 2018
